FAERS Safety Report 11358591 (Version 1)
Quarter: 2015Q3

REPORT INFORMATION
  Report Type: Spontaneous
  Country: US (occurrence: US)
  Receive Date: 20150803
  Receipt Date: 20150803
  Transmission Date: 20151125
  Serious: Yes (Hospitalization)
  Sender: FDA-Public Use
  Company Number: US-ELI_LILLY_AND_COMPANY-US200907005715

PATIENT
  Age: 70 Year
  Sex: Male

DRUGS (1)
  1. ZYPREXA [Suspect]
     Active Substance: OLANZAPINE
     Dosage: 20 MG, UNK

REACTIONS (4)
  - Oedema peripheral [Unknown]
  - Amnesia [Unknown]
  - Dysarthria [Unknown]
  - Suicide attempt [Unknown]

NARRATIVE: CASE EVENT DATE: 200907
